FAERS Safety Report 4650900-2 (Version None)
Quarter: 2005Q2

REPORT INFORMATION
  Report Type: 
  Country: None (occurrence: None)
  Receive Date: 20050429
  Receipt Date: 20050419
  Transmission Date: 20051028
  Serious: Yes (Hospitalization)
  Sender: FDA-Public Use
  Company Number: HQWYE129819APR05

PATIENT
  Age: 23 Year
  Sex: Male

DRUGS (3)
  1. TRANGOREX (AMIODARONE, INJECTION) [Suspect]
     Indication: ATRIAL FIBRILLATION
     Dosage: 300 MG DILUTED IN 100 CC
     Route: 042
     Dates: start: 20050201, end: 20050201
  2. SINTROM [Suspect]
     Route: 048
     Dates: start: 20050101
  3. BISOPROLOL (BISOPROLOL) [Concomitant]

REACTIONS (8)
  - DRUG INTERACTION [None]
  - HAEMATURIA [None]
  - HYPERHIDROSIS [None]
  - MALAISE [None]
  - MYOGLOBIN URINE PRESENT [None]
  - NASAL DISCOMFORT [None]
  - RED BLOOD CELLS URINE POSITIVE [None]
  - RENAL PAIN [None]
